FAERS Safety Report 6079431-2 (Version None)
Quarter: 2009Q1

REPORT INFORMATION
  Report Type: 
  Country: None (occurrence: None)
  Receive Date: 20090216
  Receipt Date: 20090204
  Transmission Date: 20090719
  Serious: Yes (Disabling)
  Sender: FDA-Public Use
  Company Number: PHHY2008JP33190

PATIENT
  Age: 42 Year
  Sex: Male

DRUGS (8)
  1. DIOVAN [Suspect]
     Indication: HYPERTENSION
     Dosage: 80 MG, BID
     Route: 048
     Dates: start: 20080101
  2. ENALAPRIL MALEATE [Concomitant]
     Dosage: 10 MG, UNK
     Route: 048
  3. ADALAT [Concomitant]
  4. TAKEPRON [Concomitant]
  5. CALCIUM CARBONATE [Concomitant]
  6. BIOFERMIN [Concomitant]
  7. NORVASC [Concomitant]
     Dosage: 10 MG, UNK
  8. ZYRTEC [Concomitant]
     Dosage: 1 DF, UNK

REACTIONS (4)
  - ADVERSE EVENT [None]
  - CEREBRAL HAEMORRHAGE [None]
  - NAUSEA [None]
  - SPEECH DISORDER [None]
